FAERS Safety Report 23387849 (Version 3)
Quarter: 2024Q1

REPORT INFORMATION
  Report Type: Spontaneous
  Country: ES (occurrence: ES)
  Receive Date: 20240110
  Receipt Date: 20240304
  Transmission Date: 20240410
  Serious: Yes (Other)
  Sender: FDA-Public Use
  Company Number: ES-UCBSA-2024001137

PATIENT
  Sex: Male

DRUGS (3)
  1. BRIVIACT [Suspect]
     Active Substance: BRIVARACETAM
     Indication: Epilepsy
     Dosage: 50 MILLIGRAM
     Dates: start: 20230901, end: 20231206
  2. BRIVIACT [Suspect]
     Active Substance: BRIVARACETAM
     Dosage: 75 MILLIGRAM
     Dates: start: 20231209, end: 20231210
  3. BRIVIACT [Suspect]
     Active Substance: BRIVARACETAM
     Dosage: 50 MILLIGRAM
     Dates: start: 20231211

REACTIONS (14)
  - Petit mal epilepsy [Recovered/Resolved]
  - Partial seizures [Recovered/Resolved]
  - Irritability [Recovered/Resolved]
  - Negativism [Recovered/Resolved]
  - Dissociation [Recovering/Resolving]
  - Asthenia [Recovered/Resolved]
  - Decreased appetite [Recovered/Resolved]
  - Movement disorder [Recovered/Resolved]
  - Feeling abnormal [Recovered/Resolved]
  - Somnolence [Recovered/Resolved]
  - Dizziness [Recovered/Resolved]
  - Anger [Unknown]
  - Personality change [Unknown]
  - Drug ineffective for unapproved indication [Unknown]

NARRATIVE: CASE EVENT DATE: 20230101
